FAERS Safety Report 6576200-1 (Version None)
Quarter: 2010Q1

REPORT INFORMATION
  Report Type: 
  Country: None (occurrence: None)
  Receive Date: 20100209
  Receipt Date: 20100127
  Transmission Date: 20100710
  Serious: Yes (Hospitalization)
  Sender: FDA-Public Use
  Company Number: AR-AMGEN-US390690

PATIENT
  Sex: Female
  Weight: 74 kg

DRUGS (3)
  1. ENBREL [Suspect]
     Indication: RHEUMATOID ARTHRITIS
     Route: 058
     Dates: start: 20090101, end: 20091101
  2. LOSARTAN POTASSIUM [Concomitant]
     Route: 065
  3. ALENDRONATE SODIUM [Concomitant]
     Route: 065

REACTIONS (1)
  - NEOPLASM [None]
